FAERS Safety Report 16387896 (Version 2)
Quarter: 2019Q2

REPORT INFORMATION
  Report Type: Spontaneous
  Country: JP (occurrence: JP)
  Receive Date: 20190604
  Receipt Date: 20190607
  Transmission Date: 20190711
  Serious: Yes (Other)
  Sender: FDA-Public Use
  Company Number: JP-SA-2019SA147963

PATIENT
  Age: 89 Year
  Sex: Male
  Weight: 48 kg

DRUGS (7)
  1. GASTER [Concomitant]
     Active Substance: FAMOTIDINE
     Indication: PROPHYLAXIS
     Dosage: 20 MG, Q4W
     Route: 042
     Dates: start: 20170808, end: 20180417
  2. POLARAMINE [Concomitant]
     Active Substance: DEXCHLORPHENIRAMINE MALEATE
     Indication: PROPHYLAXIS
     Dosage: 5 MG, Q4W
     Route: 042
     Dates: start: 20170808, end: 20180417
  3. JEVTANA [Suspect]
     Active Substance: CABAZITAXEL
     Dosage: DAILY DOSE: 23 MG
     Route: 041
  4. DEXART [Concomitant]
     Active Substance: DEXAMETHASONE SODIUM PHOSPHATE
     Indication: PROPHYLAXIS
     Dosage: 6.6 MG, Q4W
     Route: 042
     Dates: start: 20170808, end: 20180417
  5. G LASTA [Concomitant]
     Active Substance: PEGFILGRASTIM
     Indication: PROPHYLAXIS
     Dosage: 3.6 MG, Q4W
     Route: 058
     Dates: start: 20170809, end: 20180418
  6. PREDONINE [PREDNISOLONE ACETATE] [Concomitant]
     Active Substance: PREDNISOLONE ACETATE
     Indication: HORMONE-REFRACTORY PROSTATE CANCER
     Dosage: DAILY DOSE: 5 MG
     Route: 048
     Dates: start: 20170808
  7. JEVTANA [Suspect]
     Active Substance: CABAZITAXEL
     Indication: HORMONE-REFRACTORY PROSTATE CANCER
     Dosage: 30 MG, Q4W
     Route: 041
     Dates: start: 20170808, end: 20180417

REACTIONS (2)
  - Neutrophil count decreased [Recovered/Resolved]
  - White blood cell count decreased [Recovered/Resolved]

NARRATIVE: CASE EVENT DATE: 20170919
